FAERS Safety Report 11001049 (Version 1)
Quarter: 2015Q2

REPORT INFORMATION
  Report Type: Spontaneous
  Country: US (occurrence: US)
  Receive Date: 20150408
  Receipt Date: 20150408
  Transmission Date: 20150821
  Serious: No
  Sender: FDA-Public Use
  Company Number: US-SA-2015SA006314

PATIENT
  Age: 83 Year
  Sex: Female

DRUGS (2)
  1. ALLEGRA [Suspect]
     Active Substance: FEXOFENADINE HYDROCHLORIDE
     Indication: DYSPNOEA
     Dosage: START DATE: SINCE CHRISTMAS
     Route: 048
  2. ALLEGRA [Suspect]
     Active Substance: FEXOFENADINE HYDROCHLORIDE
     Indication: SINUS CONGESTION
     Dosage: START DATE: SINCE CHRISTMAS
     Route: 048

REACTIONS (4)
  - Drug intolerance [Unknown]
  - Lip swelling [Unknown]
  - Wrong technique in drug usage process [Unknown]
  - Swelling [Unknown]
